FAERS Safety Report 16668939 (Version 1)
Quarter: 2019Q3

REPORT INFORMATION
  Report Type: Spontaneous
  Country: US (occurrence: US)
  Receive Date: 20190619
  Receipt Date: 20190619
  Transmission Date: 20191004
  Serious: Yes (Hospitalization)
  Sender: FDA-Public Use
  Company Number: None

PATIENT
  Age: 82 Year
  Sex: Female
  Weight: 83.91 kg

DRUGS (5)
  1. VITAMIN B12 [Concomitant]
     Active Substance: CYANOCOBALAMIN
  2. VIT D [Concomitant]
     Active Substance: VITAMIN D NOS
  3. CALCIUM [Concomitant]
     Active Substance: CALCIUM
  4. VITAMIN C [Concomitant]
     Active Substance: ASCORBIC ACID
  5. METHENAMINE HIPP 1 GM [Suspect]
     Active Substance: METHENAMINE HIPPURATE
     Indication: CYSTITIS
     Dosage: ?          QUANTITY:2 DF DOSAGE FORM;OTHER FREQUENCY:1 AM 1 PM;?
     Route: 048
     Dates: start: 20170929

REACTIONS (1)
  - Alopecia [None]
